FAERS Safety Report 9449913 (Version 1)
Quarter: 2013Q3

REPORT INFORMATION
  Report Type: Spontaneous
  Country: US (occurrence: US)
  Receive Date: 20130809
  Receipt Date: 20130809
  Transmission Date: 20140515
  Serious: Yes (Death)
  Sender: FDA-Public Use
  Company Number: US-CELGENEUS-163-21880-13080539

PATIENT
  Age: 48 Year
  Sex: Female

DRUGS (1)
  1. REVLIMID [Suspect]
     Indication: HODGKIN^S DISEASE STAGE IV
     Dosage: 20 MILLIGRAM
     Route: 048
     Dates: start: 201307, end: 201307

REACTIONS (1)
  - Death [Fatal]
